FAERS Safety Report 5110507-X (Version None)
Quarter: 2006Q3

REPORT INFORMATION
  Report Type: 
  Country: None (occurrence: None)
  Receive Date: 20060918
  Receipt Date: 20060907
  Transmission Date: 20061208
  Serious: Yes (Other)
  Sender: FDA-Public Use
  Company Number: HQWYE422307SEP06

PATIENT
  Sex: 0

DRUGS (2)
  1. ANCARON (AMIODARONE, TABLET) [Suspect]
     Indication: ARRHYTHMIA
     Dosage: ORAL
     Route: 048
  2. CORTICOSTEROID NOS (CORTICOSTEROID NOS) [Concomitant]

REACTIONS (3)
  - INTERSTITIAL LUNG DISEASE [None]
  - LUNG DISORDER [None]
  - THERAPY NON-RESPONDER [None]
